FAERS Safety Report 7826573-4 (Version None)
Quarter: 2011Q4

REPORT INFORMATION
  Report Type: 
  Country: None (occurrence: None)
  Receive Date: 20111020
  Receipt Date: 20111010
  Transmission Date: 20120403
  Serious: Yes (Hospitalization, Other)
  Sender: FDA-Public Use
  Company Number: US-ELI_LILLY_AND_COMPANY-US201109003705

PATIENT
  Age: 55 Year
  Sex: Female

DRUGS (10)
  1. DICLOFENAC [Concomitant]
     Dosage: 75 MG, BID
  2. ZETIA [Concomitant]
     Dosage: 10 MG, QD
  3. CARBAMAZEPINE [Concomitant]
     Dosage: 200 MG, BID
  4. PROAIR HFA [Concomitant]
     Dosage: UNK, PRN
  5. NEURONTIN [Concomitant]
     Dosage: 800 MG, TID
  6. SIMVASTATIN [Concomitant]
     Dosage: 40 MG, QD
  7. CYMBALTA [Suspect]
     Dosage: UNK, UNKNOWN
     Dates: start: 20110920
  8. CYCLOBENZAPRINE [Concomitant]
     Dosage: 10 MG, TID
  9. CYMBALTA [Suspect]
     Indication: MUSCULOSKELETAL PAIN
     Dosage: 60 MG, QD
     Route: 048
     Dates: start: 20041101, end: 20110908
  10. OMEPRAZOLE [Concomitant]
     Dosage: 40 MG, QD

REACTIONS (3)
  - CONSTIPATION [None]
  - INTESTINAL PERFORATION [None]
  - INTESTINAL OBSTRUCTION [None]
